FAERS Safety Report 4565644-5 (Version None)
Quarter: 2005Q1

REPORT INFORMATION
  Report Type: 
  Country: None (occurrence: None)
  Receive Date: 20050126
  Receipt Date: 20050111
  Transmission Date: 20050727
  Serious: Yes (Death)
  Sender: FDA-Public Use
  Company Number: 200500260

PATIENT
  Sex: Female
  Weight: 1.11 kg

DRUGS (1)
  1. TAZORAC [Suspect]
     Indication: ACNE
     Dates: start: 20030201, end: 20030611

REACTIONS (4)
  - ANENCEPHALY [None]
  - DEATH NEONATAL [None]
  - DRUG EXPOSURE DURING PREGNANCY [None]
  - PREMATURE BABY [None]
